FAERS Safety Report 5761390-0 (Version None)
Quarter: 2008Q2

REPORT INFORMATION
  Report Type: 
  Country: None (occurrence: None)
  Receive Date: 20080527
  Receipt Date: 20080229
  Transmission Date: 20081010
  Serious: Yes (Other)
  Sender: FDA-Public Use
  Company Number: 257035

PATIENT
  Age: 47 Year
  Sex: Female

DRUGS (4)
  1. HERCEPTIN [Suspect]
     Indication: BREAST CANCER
     Dates: start: 20080215
  2. TAXOTERE [Concomitant]
  3. CARBOPLATIN [Concomitant]
  4. NEULASTA [Concomitant]

REACTIONS (3)
  - CHEST DISCOMFORT [None]
  - URTICARIA [None]
  - WHEEZING [None]
